FAERS Safety Report 6706962-1 (Version None)
Quarter: 2010Q2

REPORT INFORMATION
  Report Type: 
  Country: None (occurrence: None)
  Receive Date: 20100503
  Receipt Date: 20100423
  Transmission Date: 20101027
  Serious: Yes (Hospitalization, Disabling, Other)
  Sender: FDA-Public Use
  Company Number: US-MERCK-0905USA02289

PATIENT
  Age: 79 Year
  Sex: Female

DRUGS (8)
  1. FOSAMAX [Suspect]
     Indication: OSTEOPOROSIS
     Route: 048
     Dates: start: 20050101, end: 20090201
  2. FOSAMAX [Suspect]
     Route: 048
  3. LIPITOR [Concomitant]
     Indication: BLOOD CHOLESTEROL INCREASED
     Route: 065
     Dates: start: 20020101
  4. LIPITOR [Concomitant]
     Indication: HYPERLIPIDAEMIA
     Route: 065
     Dates: start: 20020101
  5. ASPIRIN [Concomitant]
     Route: 065
  6. QUINARETIC [Concomitant]
     Indication: HYPERTENSION
     Route: 065
     Dates: start: 19950101
  7. CALTRATE [Concomitant]
     Indication: OSTEOPOROSIS
     Route: 065
  8. TAZTIA XT [Concomitant]
     Indication: HYPERTENSION
     Route: 065
     Dates: start: 19950101

REACTIONS (19)
  - AGEUSIA [None]
  - ANGIOPATHY [None]
  - ARTHROPATHY [None]
  - CAROTID ARTERY STENOSIS [None]
  - DEPRESSION [None]
  - DEVICE DISLOCATION [None]
  - FEMORAL NECK FRACTURE [None]
  - FISTULA DISCHARGE [None]
  - HYPOAESTHESIA [None]
  - JAW FRACTURE [None]
  - ORAL CAVITY FISTULA [None]
  - ORAL INFECTION [None]
  - OSTEOMYELITIS [None]
  - OSTEONECROSIS OF JAW [None]
  - PAROTITIS [None]
  - SIALOADENITIS [None]
  - SINUSITIS [None]
  - SWELLING [None]
  - SYNCOPE [None]
